FAERS Safety Report 7822642-3 (Version None)
Quarter: 2011Q4

REPORT INFORMATION
  Report Type: 
  Country: None (occurrence: None)
  Receive Date: 20111018
  Receipt Date: 20111014
  Transmission Date: 20120403
  Serious: Yes (Death)
  Sender: FDA-Public Use
  Company Number: US-ASTRAZENECA-2011SE61819

PATIENT
  Age: 28 Year
  Sex: Male

DRUGS (1)
  1. BUDESONIDE [Suspect]
     Route: 048

REACTIONS (1)
  - SEPTIC SHOCK [None]
